FAERS Safety Report 11114683 (Version 1)
Quarter: 2015Q2

REPORT INFORMATION
  Report Type: Spontaneous
  Country: GB (occurrence: None)
  Receive Date: 20150512
  Receipt Date: 20150512
  Transmission Date: 20150821
  Serious: Yes (Hospitalization)
  Sender: FDA-Public Use
  Company Number: 2015HINREG0418

PATIENT
  Age: 52 Year
  Sex: Male
  Weight: 75 kg

DRUGS (9)
  1. LINEZOLID (LINEZOLID) UNKNOWN [Suspect]
     Active Substance: LINEZOLID
     Indication: POSTOPERATIVE WOUND INFECTION
     Route: 048
     Dates: start: 20150408, end: 20150422
  2. PHENYTOIN. [Concomitant]
     Active Substance: PHENYTOIN
  3. CLONAZEPAM. [Concomitant]
     Active Substance: CLONAZEPAM
  4. OMEPRAZOLE. [Concomitant]
     Active Substance: OMEPRAZOLE
  5. CO-CODAMOL (CODEINE PHOSPHATE PARACETAMOL) [Concomitant]
  6. BACLOFEN. [Concomitant]
     Active Substance: BACLOFEN
  7. EPILIM CHRONO (SODIUM VALPROATE, VALPROIC ACID) [Concomitant]
  8. DIAZEPAM. [Concomitant]
     Active Substance: DIAZEPAM
  9. LAMOTRIGINE. [Concomitant]
     Active Substance: LAMOTRIGINE

REACTIONS (2)
  - Hyponatraemia [None]
  - Convulsive threshold lowered [None]

NARRATIVE: CASE EVENT DATE: 20150410
